FAERS Safety Report 8360702-1 (Version None)
Quarter: 2012Q2

REPORT INFORMATION
  Report Type: 
  Country: None (occurrence: None)
  Receive Date: 20120515
  Receipt Date: 20120511
  Transmission Date: 20120825
  Serious: Yes (Death, Hospitalization)
  Sender: FDA-Public Use
  Company Number: US-B.I. PHARMACEUTICALS,INC./RIDGEFIELD-2012-BP-10648BP

PATIENT
  Age: 50 Year
  Sex: Female

DRUGS (2)
  1. PRADAXA [Suspect]
     Indication: THROMBOSIS PROPHYLAXIS
     Dates: start: 20120401
  2. XARELTO [Concomitant]

REACTIONS (3)
  - PULMONARY EMBOLISM [None]
  - CEREBROVASCULAR ACCIDENT [None]
  - RENAL IMPAIRMENT [None]
